FAERS Safety Report 10206705 (Version 1)
Quarter: 2014Q2

REPORT INFORMATION
  Report Type: Spontaneous
  Country: US (occurrence: US)
  Receive Date: 20140530
  Receipt Date: 20140530
  Transmission Date: 20141212
  Serious: Yes (Other)
  Sender: FDA-Public Use
  Company Number: US-BAYER-2014-075208

PATIENT
  Age: 47 Year
  Sex: Female
  Weight: 54 kg

DRUGS (1)
  1. ALKA-SELTZER PLUS SEVERE COLD + FLU FORMULA [Suspect]
     Indication: NASOPHARYNGITIS
     Dosage: 2 DF, PRN
     Route: 048
     Dates: start: 2014

REACTIONS (3)
  - Stupor [None]
  - Somnolence [Recovered/Resolved]
  - Feeling abnormal [Recovered/Resolved]
